FAERS Safety Report 21493711 (Version 2)
Quarter: 2022Q4

REPORT INFORMATION
  Report Type: Spontaneous
  Country: US (occurrence: US)
  Receive Date: 20221021
  Receipt Date: 20221215
  Transmission Date: 20230113
  Serious: No
  Sender: FDA-Public Use
  Company Number: US-VIIV HEALTHCARE LIMITED-US2022AMR149704

PATIENT
  Age: 57 Year
  Sex: Female

DRUGS (2)
  1. RILPIVIRINE [Suspect]
     Active Substance: RILPIVIRINE
     Indication: Product used for unknown indication
     Dosage: 600/900 MG, Q2 M
     Route: 030
  2. CABOTEGRAVIR [Suspect]
     Active Substance: CABOTEGRAVIR
     Indication: Product used for unknown indication
     Dosage: 600/900 MG, Q2 M
     Route: 030

REACTIONS (2)
  - Viral load increased [Unknown]
  - Malabsorption from injection site [Recovering/Resolving]

NARRATIVE: CASE EVENT DATE: 20220707
